FAERS Safety Report 13655594 (Version 1)
Quarter: 2017Q2

REPORT INFORMATION
  Report Type: Spontaneous
  Country: US (occurrence: US)
  Receive Date: 20170614
  Receipt Date: 20170614
  Transmission Date: 20170830
  Serious: Yes (Other)
  Sender: FDA-Public Use
  Company Number: None

PATIENT
  Age: 51 Year
  Sex: Male
  Weight: 94.95 kg

DRUGS (12)
  1. MODAFINIL. [Concomitant]
     Active Substance: MODAFINIL
  2. LOSARTAN/HCTZ [Concomitant]
     Active Substance: HYDROCHLOROTHIAZIDE\LOSARTAN
  3. DULOXETINE. [Concomitant]
     Active Substance: DULOXETINE
  4. TOPIRAMATE. [Concomitant]
     Active Substance: TOPIRAMATE
  5. METFORMIN [Concomitant]
     Active Substance: METFORMIN HYDROCHLORIDE
  6. REBIF REBIDOSE [Suspect]
     Active Substance: INTERFERON BETA-1A
     Indication: MULTIPLE SCLEROSIS
     Dosage: ?      QUANTITY:1 INJECTION(S);OTHER FREQUENCY:3 TIMES A WEEK;?
     Route: 058
     Dates: start: 20170420, end: 20170602
  7. ASPIRIN. [Concomitant]
     Active Substance: ASPIRIN
  8. POTASSIUM [Concomitant]
     Active Substance: POTASSIUM
  9. DITROPAN XL [Concomitant]
     Active Substance: OXYBUTYNIN CHLORIDE
  10. IRON [Concomitant]
     Active Substance: IRON
  11. VITAMIN D [Concomitant]
     Active Substance: CHOLECALCIFEROL
  12. LEVOTHYROXINE. [Concomitant]
     Active Substance: LEVOTHYROXINE

REACTIONS (4)
  - Urticaria [None]
  - Contusion [None]
  - Diarrhoea [None]
  - Squamous cell carcinoma of skin [None]

NARRATIVE: CASE EVENT DATE: 20170523
